FAERS Safety Report 23536958 (Version 1)
Quarter: 2024Q1

REPORT INFORMATION
  Report Type: Report from Study
  Country: PL (occurrence: PL)
  Receive Date: 20240219
  Receipt Date: 20240219
  Transmission Date: 20240409
  Serious: Yes (Death, Life-Threatening, Hospitalization)
  Sender: FDA-Public Use
  Company Number: PL-JNJFOC-20240236152

PATIENT
  Age: 66 Year
  Sex: Female
  Weight: 55 kg

DRUGS (21)
  1. DARZALEX [Suspect]
     Active Substance: DARATUMUMAB
     Indication: Plasma cell myeloma refractory
     Route: 058
     Dates: start: 20230116
  2. DARZALEX [Suspect]
     Active Substance: DARATUMUMAB
     Dosage: SECOND REGIMEN
     Route: 058
     Dates: start: 20230123
  3. DARZALEX [Suspect]
     Active Substance: DARATUMUMAB
     Dosage: THIRD REGIMEN
     Route: 058
     Dates: start: 20230130
  4. DARZALEX [Suspect]
     Active Substance: DARATUMUMAB
     Dosage: FOURTH REGIMEN
     Route: 058
     Dates: start: 20230206
  5. DARZALEX [Suspect]
     Active Substance: DARATUMUMAB
     Dosage: FIFTH REGIMEN
     Route: 058
     Dates: start: 20230213
  6. DARZALEX [Suspect]
     Active Substance: DARATUMUMAB
     Dosage: SIXTH REGIMEN
     Route: 058
     Dates: start: 20230220
  7. DARZALEX [Suspect]
     Active Substance: DARATUMUMAB
     Dosage: SEVENTH REGIMEN
     Route: 058
     Dates: start: 20230227
  8. ELRANATAMAB [Suspect]
     Active Substance: ELRANATAMAB
     Indication: Plasma cell myeloma refractory
     Dosage: FIRST REGIMEN
     Route: 058
     Dates: start: 20230102
  9. ELRANATAMAB [Suspect]
     Active Substance: ELRANATAMAB
     Dosage: SECOND REGIMEN
     Route: 058
     Dates: start: 20230105
  10. ELRANATAMAB [Suspect]
     Active Substance: ELRANATAMAB
     Dosage: THIRD REGIMEN.
     Route: 058
     Dates: start: 20230109
  11. ELRANATAMAB [Suspect]
     Active Substance: ELRANATAMAB
     Dosage: FOURTH REGIMEN
     Route: 058
     Dates: start: 20230116
  12. ELRANATAMAB [Suspect]
     Active Substance: ELRANATAMAB
     Dosage: FIFTH REGIMEN
     Route: 058
     Dates: start: 20230123
  13. ELRANATAMAB [Suspect]
     Active Substance: ELRANATAMAB
     Dosage: SIXTH REGIMEN
     Route: 058
     Dates: start: 20230130
  14. ELRANATAMAB [Suspect]
     Active Substance: ELRANATAMAB
     Dosage: SEVENTH REGIMEN
     Route: 058
     Dates: start: 20230206
  15. ELRANATAMAB [Suspect]
     Active Substance: ELRANATAMAB
     Dosage: EIGHT REGIMEN
     Route: 058
     Dates: start: 20230213
  16. ELRANATAMAB [Suspect]
     Active Substance: ELRANATAMAB
     Dosage: NINTH REGIMEN
     Route: 058
     Dates: start: 20230220
  17. ELRANATAMAB [Suspect]
     Active Substance: ELRANATAMAB
     Dosage: TENTH REGIMEN
     Route: 058
     Dates: start: 20230227
  18. BISOPROLOL [Concomitant]
     Active Substance: BISOPROLOL\BISOPROLOL FUMARATE
     Indication: Hypertension
     Route: 048
     Dates: start: 2018
  19. HYDROCHLOROTHIAZIDE [Concomitant]
     Active Substance: HYDROCHLOROTHIAZIDE
     Indication: Hypertension
     Route: 048
     Dates: start: 2018
  20. AMOXICILLIN\CLAVULANIC ACID [Concomitant]
     Active Substance: AMOXICILLIN\CLAVULANIC ACID
     Indication: Respiratory tract infection
     Route: 048
     Dates: start: 20230306, end: 20230311
  21. DEXAMETHASONE [Concomitant]
     Active Substance: DEXAMETHASONE
     Indication: Product used for unknown indication
     Route: 065

REACTIONS (3)
  - Upper gastrointestinal haemorrhage [Fatal]
  - Leukocytosis [Unknown]
  - Thrombocytosis [Unknown]

NARRATIVE: CASE EVENT DATE: 20230306
